FAERS Safety Report 4653273-4 (Version None)
Quarter: 2005Q2

REPORT INFORMATION
  Report Type: 
  Country: None (occurrence: None)
  Receive Date: 20050505
  Receipt Date: 20050407
  Transmission Date: 20051028
  Serious: Yes (Hospitalization)
  Sender: FDA-Public Use
  Company Number: FR-BOEHRINGER INGELHEIM PHARMACEUTICALS, INC.-2005-FF-00247FF

PATIENT
  Age: 46 Year
  Sex: Male
  Weight: 67 kg

DRUGS (5)
  1. VIRAMUNE [Suspect]
     Indication: HIV INFECTION
     Route: 048
     Dates: start: 19990201
  2. COMBIVIR [Concomitant]
     Indication: HIV INFECTION
     Route: 048
     Dates: start: 19990201
  3. ACTOS [Concomitant]
     Route: 048
     Dates: start: 20040101
  4. DIAMICRON [Concomitant]
     Route: 048
     Dates: start: 20031101
  5. MEDIATOR [Concomitant]
     Route: 048
     Dates: start: 20031101

REACTIONS (2)
  - CORONARY ARTERY STENOSIS [None]
  - MYOCARDIAL INFARCTION [None]
